FAERS Safety Report 6649032-3 (Version None)
Quarter: 2010Q1

REPORT INFORMATION
  Report Type: 
  Country: None (occurrence: None)
  Receive Date: 20100309
  Receipt Date: 20091222
  Transmission Date: 20100710
  Serious: No
  Sender: FDA-Public Use
  Company Number: 2009SP043355

PATIENT

DRUGS (1)
  1. SAPHRIS [Suspect]
     Indication: DRUG USE FOR UNKNOWN INDICATION

REACTIONS (1)
  - ORAL DISCOMFORT [None]
